FAERS Safety Report 5046693-X (Version None)
Quarter: 2006Q3

REPORT INFORMATION
  Report Type: 
  Country: None (occurrence: None)
  Receive Date: 20060705
  Receipt Date: 20060705
  Transmission Date: 20061208
  Serious: No
  Sender: FDA-Public Use
  Company Number: None

PATIENT
  Age: 54 Year
  Sex: Female
  Weight: 49.8957 kg

DRUGS (1)
  1. FEXOFENADINE HCL [Suspect]
     Indication: SEASONAL ALLERGY
     Dosage: 180 MG Q DAY PO
     Route: 048
     Dates: start: 20060502

REACTIONS (1)
  - DRY EYE [None]
